FAERS Safety Report 16836784 (Version 1)
Quarter: 2019Q3

REPORT INFORMATION
  Report Type: Spontaneous
  Country: IT (occurrence: IT)
  Receive Date: 20190922
  Receipt Date: 20190922
  Transmission Date: 20191005
  Serious: Yes (Other)
  Sender: FDA-Public Use
  Company Number: IT-UCBSA-2019039288

PATIENT
  Age: 10 Year
  Sex: Female

DRUGS (1)
  1. LEVETIRACETAM. [Suspect]
     Active Substance: LEVETIRACETAM
     Indication: EPILEPSY
     Dosage: STRENNGTH: 100 MG/ML
     Route: 048

REACTIONS (2)
  - Epilepsy [Recovering/Resolving]
  - Therapy non-responder [Unknown]

NARRATIVE: CASE EVENT DATE: 20190708
